FAERS Safety Report 5044483-5 (Version None)
Quarter: 2006Q3

REPORT INFORMATION
  Report Type: 
  Country: None (occurrence: None)
  Receive Date: 20060706
  Receipt Date: 20060614
  Transmission Date: 20061208
  Serious: Yes (Death, Hospitalization)
  Sender: FDA-Public Use
  Company Number: FR-GLAXOSMITHKLINE-B0427749A

PATIENT
  Age: 1 Month
  Sex: Male

DRUGS (4)
  1. RETROVIR [Suspect]
     Indication: ANTIVIRAL PROPHYLAXIS
     Dosage: 2.3MG TWICE PER DAY
     Route: 048
     Dates: start: 20060207, end: 20060307
  2. EPIVIR [Concomitant]
     Indication: HIV INFECTION
     Dates: start: 20050101, end: 20060201
  3. VIRACEPT [Concomitant]
     Indication: HIV INFECTION
     Dates: start: 20050101, end: 20060201
  4. TENOFOVIR [Concomitant]
     Indication: HIV INFECTION
     Dates: start: 20050101, end: 20060201

REACTIONS (15)
  - ACCIDENTAL OVERDOSE [None]
  - AMMONIA INCREASED [None]
  - CAESAREAN SECTION [None]
  - CEREBRAL ISCHAEMIA [None]
  - DRUG EXPOSURE DURING PREGNANCY [None]
  - DYSKINESIA [None]
  - EYE DISORDER [None]
  - FEEDING DISORDER NEONATAL [None]
  - HYPERLACTACIDAEMIA [None]
  - HYPOTONIA [None]
  - HYPOXIA [None]
  - MALAISE [None]
  - OXYGEN SUPPLEMENTATION [None]
  - PALLOR [None]
  - PREMATURE BABY [None]
